FAERS Safety Report 14021985 (Version 1)
Quarter: 2017Q3

REPORT INFORMATION
  Report Type: Spontaneous
  Country: US (occurrence: US)
  Receive Date: 20170928
  Receipt Date: 20170928
  Transmission Date: 20171128
  Serious: Yes (Hospitalization)
  Sender: FDA-Public Use
  Company Number: US-IRONWOOD PHARMACEUTICALS, INC.-IRWD2017003762

PATIENT

DRUGS (1)
  1. ZURAMPIC [Suspect]
     Active Substance: LESINURAD
     Indication: HYPERURICAEMIA
     Dosage: 200 MG, DAILY (QD)
     Route: 065

REACTIONS (1)
  - Adverse reaction [Unknown]
